FAERS Safety Report 17038569 (Version 4)
Quarter: 2019Q4

REPORT INFORMATION
  Report Type: Spontaneous
  Country: MX (occurrence: MX)
  Receive Date: 20191115
  Receipt Date: 20191205
  Transmission Date: 20200122
  Serious: Yes (Other)
  Sender: FDA-Public Use
  Company Number: MX-ASTRAZENECA-2019SF61652

PATIENT
  Age: 75 Year
  Sex: Female
  Weight: 71 kg

DRUGS (23)
  1. CO-DIOVAN [Suspect]
     Active Substance: HYDROCHLOROTHIAZIDE\VALSARTAN
     Indication: HYPERTENSION
     Dosage: 160/25MG, 1 TABLET A DAY
     Route: 048
  2. PANTOPRAZOL [Suspect]
     Active Substance: PANTOPRAZOLE SODIUM
     Route: 065
  3. MODIVAL [Concomitant]
     Active Substance: CLORAZEPATE DIPOTASSIUM
     Indication: EXERCISE LACK OF
     Dates: start: 2016
  4. TRANSTEC [Suspect]
     Active Substance: BUPRENORPHINE
     Indication: BACK PAIN
     Dosage: 0.5DF UNKNOWN
     Route: 062
  5. MAGNESIUM VALPROATE [Concomitant]
     Active Substance: VALPROATE MAGNESIUM
  6. OMEPRAZOL [Suspect]
     Active Substance: OMEPRAZOLE
     Route: 048
  7. BROMAZEPAM [Suspect]
     Active Substance: BROMAZEPAM
     Indication: EPILEPSY
     Dosage: 1.5MG UNKNOWN
     Route: 048
  8. LEVACETAM [Suspect]
     Active Substance: LEVETIRACETAM
     Route: 065
  9. SPIRONOLALACTONE [Suspect]
     Active Substance: SPIRONOLACTONE
     Indication: HEART RATE ABNORMAL
     Route: 048
  10. NEXIUM [Suspect]
     Active Substance: ESOMEPRAZOLE MAGNESIUM
     Indication: GASTRIC ULCER
     Route: 048
     Dates: start: 2016
  11. UNIVAL [LANSOPRAZOLE] [Suspect]
     Active Substance: LANSOPRAZOLE
     Indication: NAUSEA
     Dosage: AS NEEDED
     Route: 048
  12. UNIVAL [LANSOPRAZOLE] [Suspect]
     Active Substance: LANSOPRAZOLE
     Indication: ABDOMINAL PAIN UPPER
     Dosage: AS NEEDED
     Route: 048
  13. MODIODAL [Suspect]
     Active Substance: MODAFINIL
     Indication: DECREASED ACTIVITY
     Route: 048
     Dates: start: 2015
  14. VIVITAR [Suspect]
     Active Substance: SPIRONOLACTONE
     Indication: FLUID RETENTION
     Route: 065
  15. LEVETIRACETAM. [Concomitant]
     Active Substance: LEVETIRACETAM
     Indication: EPILEPSY
     Dates: start: 2013
  16. PLAVIX [Suspect]
     Active Substance: CLOPIDOGREL BISULFATE
     Indication: ANTICOAGULANT THERAPY
     Route: 048
     Dates: start: 2015
  17. NALTREXONE [Suspect]
     Active Substance: NALTREXONE
     Route: 065
  18. RAMIPRIL. [Suspect]
     Active Substance: RAMIPRIL
     Route: 065
  19. ELATEC [Concomitant]
     Indication: PERIPHERAL CIRCULATORY FAILURE
     Route: 048
  20. IRON/FOLIC ACID [Concomitant]
     Indication: ANAEMIA
     Dosage: 100/80 MG
     Route: 048
  21. FRISIUM [Suspect]
     Active Substance: CLOBAZAM
     Indication: EPILEPSY
     Route: 065
     Dates: start: 2015
  22. LEVACETAM [Suspect]
     Active Substance: LEVETIRACETAM
     Route: 065
  23. SIFROL [Suspect]
     Active Substance: PRAMIPEXOLE
     Indication: EPILEPSY
     Route: 065
     Dates: start: 2015

REACTIONS (11)
  - Epilepsy [Unknown]
  - Meningitis [Unknown]
  - Iodine allergy [Unknown]
  - Parkinson^s disease [Unknown]
  - Ulcer [Unknown]
  - Gastric ulcer [Not Recovered/Not Resolved]
  - Oesophagitis [Not Recovered/Not Resolved]
  - Vein rupture [Unknown]
  - Bleeding varicose vein [Unknown]
  - Thrombosis [Recovered/Resolved]
  - Anaemia [Not Recovered/Not Resolved]

NARRATIVE: CASE EVENT DATE: 2015
